FAERS Safety Report 16875388 (Version 1)
Quarter: 2019Q4

REPORT INFORMATION
  Report Type: Report from Study
  Country: GB (occurrence: GB)
  Receive Date: 20191002
  Receipt Date: 20191002
  Transmission Date: 20200122
  Serious: Yes (Death, Other)
  Sender: FDA-Public Use
  Company Number: GB-ROCHE-2416294

PATIENT
  Age: 1 Year
  Sex: Male

DRUGS (6)
  1. FLUDARABINE PHOSPHATE. [Suspect]
     Active Substance: FLUDARABINE PHOSPHATE
     Indication: BONE MARROW CONDITIONING REGIMEN
     Dosage: 160 MG/M2 TOTAL DOSE; DAYS -7 TO -4
     Route: 065
  2. TREOSULFAN [Suspect]
     Active Substance: TREOSULFAN
     Indication: BONE MARROW CONDITIONING REGIMEN
     Dosage: 36-42 G/M2 TOTAL DOSE; DAYS -7 TO -5
     Route: 065
  3. MYCOPHENOLATE MOFETIL. [Suspect]
     Active Substance: MYCOPHENOLATE MOFETIL
     Indication: PROPHYLAXIS AGAINST GRAFT VERSUS HOST DISEASE
     Route: 065
  4. URSODEOXYCHOLIC ACID [Concomitant]
     Active Substance: URSODIOL
     Route: 065
  5. THIOTEPA. [Suspect]
     Active Substance: THIOTEPA
     Indication: BONE MARROW CONDITIONING REGIMEN
     Dosage: 10 MG/KG; DAY -4
     Route: 065
  6. CYCLOSPORINE. [Concomitant]
     Active Substance: CYCLOSPORINE
     Indication: PROPHYLAXIS AGAINST GRAFT VERSUS HOST DISEASE
     Dosage: TROUGH TARGET 50-100 MMOL/L
     Route: 065

REACTIONS (2)
  - Cytomegalovirus infection [Unknown]
  - Aspergillus infection [Fatal]
